FAERS Safety Report 9385094 (Version 1)
Quarter: 2013Q3

REPORT INFORMATION
  Report Type: Spontaneous
  Country: US (occurrence: US)
  Receive Date: 20130705
  Receipt Date: 20130705
  Transmission Date: 20140515
  Serious: Yes (Other)
  Sender: FDA-Public Use
  Company Number: US-BAYER-2013-080384

PATIENT
  Age: 78 Year
  Sex: Female
  Weight: 66.21 kg

DRUGS (5)
  1. ALEVE CAPLET [Suspect]
     Dosage: 2 DF, PRN
     Route: 048
     Dates: start: 201306, end: 20130626
  2. DICLOFENAC [Concomitant]
  3. OFLOXACINE A [Concomitant]
  4. VITAMIN A [Concomitant]
  5. ACID REDUCER [Concomitant]

REACTIONS (2)
  - Cardiac flutter [Recovered/Resolved]
  - Contusion [Not Recovered/Not Resolved]
